FAERS Safety Report 5032690-7 (Version None)
Quarter: 2006Q2

REPORT INFORMATION
  Report Type: 
  Country: None (occurrence: None)
  Receive Date: 20060620
  Receipt Date: 20060620
  Transmission Date: 20061013
  Serious: Yes (Other)
  Sender: FDA-Public Use
  Company Number: None

PATIENT
  Age: 15 Year
  Sex: Female
  Weight: 58.0604 kg

DRUGS (1)
  1. ALDARA [Suspect]
     Indication: SKIN PAPILLOMA
     Dosage: APPLY   3 TIMES A WEEK  TOPICAL
     Route: 061
     Dates: start: 20060301, end: 20060612

REACTIONS (3)
  - PAIN [None]
  - VAGINAL BURNING SENSATION [None]
  - VAGINAL DISORDER [None]
